FAERS Safety Report 10805552 (Version 1)
Quarter: 2015Q1

REPORT INFORMATION
  Report Type: Report from Study
  Country: US (occurrence: US)
  Receive Date: 20150217
  Receipt Date: 20150217
  Transmission Date: 20150721
  Serious: No
  Sender: FDA-Public Use
  Company Number: US-ABBVIE-14K-163-1241524-00

PATIENT
  Age: 56 Year
  Sex: Male

DRUGS (25)
  1. METOPROLOL [Concomitant]
     Active Substance: METOPROLOL
     Indication: OEDEMA
  2. NOVOLOG [Concomitant]
     Active Substance: INSULIN ASPART
     Indication: DIABETES MELLITUS
     Dosage: X FOUR DAILY, SLIDING SCALE
  3. AMBIEN [Concomitant]
     Active Substance: ZOLPIDEM TARTRATE
     Indication: INSOMNIA
     Dosage: DAILY
  4. LASIX [Concomitant]
     Active Substance: FUROSEMIDE
     Indication: OEDEMA
  5. MAGNESIUM [Concomitant]
     Active Substance: MAGNESIUM
     Indication: OEDEMA
  6. VIT B1 [Concomitant]
     Indication: PRODUCT USED FOR UNKNOWN INDICATION
  7. MULTIVITAMIN [Concomitant]
     Active Substance: VITAMINS
     Indication: VITAMIN SUPPLEMENTATION
  8. XIFAXAN [Concomitant]
     Active Substance: RIFAXIMIN
     Indication: CIRRHOSIS ALCOHOLIC
  9. PREVACID [Concomitant]
     Active Substance: LANSOPRAZOLE
     Indication: DYSPEPSIA
     Dosage: DAILY
  10. HUMIRA [Suspect]
     Active Substance: ADALIMUMAB
     Indication: PSORIASIS
     Dates: start: 201403
  11. METOPROLOL [Concomitant]
     Active Substance: METOPROLOL
     Indication: HYPERTENSION
  12. FOLIC ACID. [Concomitant]
     Active Substance: FOLIC ACID
     Indication: OEDEMA
  13. MULTIVITAMIN [Concomitant]
     Active Substance: VITAMINS
     Indication: OEDEMA
  14. LASIX [Concomitant]
     Active Substance: FUROSEMIDE
     Indication: OEDEMA
  15. ASPIRIN. [Concomitant]
     Active Substance: ASPIRIN
     Indication: OEDEMA
  16. LANTUS [Concomitant]
     Active Substance: INSULIN GLARGINE
     Indication: OEDEMA
  17. ASPIRIN. [Concomitant]
     Active Substance: ASPIRIN
     Indication: PRODUCT USED FOR UNKNOWN INDICATION
     Dosage: DAILY
  18. MAGNESIUM [Concomitant]
     Active Substance: MAGNESIUM
     Indication: PRODUCT USED FOR UNKNOWN INDICATION
  19. LISINOPRIL. [Concomitant]
     Active Substance: LISINOPRIL
     Indication: HYPERTENSION
  20. LANTUS [Concomitant]
     Active Substance: INSULIN GLARGINE
     Indication: DIABETES MELLITUS
     Dosage: DAILY
  21. AMBIEN [Concomitant]
     Active Substance: ZOLPIDEM TARTRATE
     Indication: OEDEMA
  22. PREVACID [Concomitant]
     Active Substance: LANSOPRAZOLE
     Indication: OEDEMA
  23. FOLIC ACID. [Concomitant]
     Active Substance: FOLIC ACID
     Indication: PRODUCT USED FOR UNKNOWN INDICATION
  24. VIT B1 [Concomitant]
     Indication: OEDEMA
  25. LISINOPRIL. [Concomitant]
     Active Substance: LISINOPRIL
     Indication: OEDEMA

REACTIONS (3)
  - Loss of control of legs [Not Recovered/Not Resolved]
  - Fall [Not Recovered/Not Resolved]
  - Decreased appetite [Unknown]

NARRATIVE: CASE EVENT DATE: 201404
